FAERS Safety Report 17757608 (Version 3)
Quarter: 2020Q2

REPORT INFORMATION
  Report Type: Spontaneous
  Country: US (occurrence: US)
  Receive Date: 20200507
  Receipt Date: 20200514
  Transmission Date: 20200714
  Serious: Yes (Hospitalization)
  Sender: FDA-Public Use
  Company Number: US-PFIZER INC-2019209629

PATIENT
  Age: 74 Year
  Sex: Female
  Weight: 79.37 kg

DRUGS (3)
  1. REVATIO [Suspect]
     Active Substance: SILDENAFIL CITRATE
     Indication: PULMONARY HYPERTENSION
     Dosage: 120 MG, DAILY (20 MG SIX A DAY)
     Route: 048
  2. REVATIO [Suspect]
     Active Substance: SILDENAFIL CITRATE
     Dosage: 20 MG, 3X/DAY (ONE TAB EVERY 8 HOURS)
     Route: 048
  3. REVATIO [Suspect]
     Active Substance: SILDENAFIL CITRATE
     Dosage: 40 MG, 3X/DAY (TWO TABLETS EVERY 8 HOURS)
     Route: 048
     Dates: start: 2019

REACTIONS (5)
  - Off label use [Unknown]
  - Weight decreased [Unknown]
  - Gout [Unknown]
  - Fluid retention [Recovered/Resolved]
  - Product use issue [Unknown]

NARRATIVE: CASE EVENT DATE: 202001
